FAERS Safety Report 7410085-6 (Version None)
Quarter: 2011Q2

REPORT INFORMATION
  Report Type: 
  Country: None (occurrence: None)
  Receive Date: 20110412
  Receipt Date: 20110405
  Transmission Date: 20111010
  Serious: Yes (Hospitalization)
  Sender: FDA-Public Use
  Company Number: US-B.I. PHARMACEUTICALS,INC./RIDGEFIELD-2011-BP-10010BP

PATIENT
  Age: 82 Year
  Sex: Male

DRUGS (2)
  1. LOPRESSOR [Concomitant]
  2. PRADAXA [Suspect]
     Indication: ATRIAL FIBRILLATION
     Dosage: 300 MG
     Route: 048
     Dates: start: 20110328

REACTIONS (5)
  - SKIN DISCOLOURATION [None]
  - MELAENA [None]
  - BLOOD PRESSURE DECREASED [None]
  - DIZZINESS [None]
  - ASTHENIA [None]
